FAERS Safety Report 9757847 (Version 3)
Quarter: 2014Q1

REPORT INFORMATION
  Report Type: Report from Study
  Country: CA (occurrence: CA)
  Receive Date: 20131216
  Receipt Date: 20140107
  Transmission Date: 20141002
  Serious: Yes (Other)
  Sender: FDA-Public Use
  Company Number: CA-ROCHE-1318630

PATIENT
  Age: 57 Year
  Sex: Male
  Weight: 92.7 kg

DRUGS (5)
  1. AVASTIN [Suspect]
     Indication: GLIOBLASTOMA
     Route: 042
     Dates: start: 20131113, end: 20131127
  2. ELTROXIN [Concomitant]
  3. KEPPRA [Concomitant]
  4. DEXAMETHASONE [Concomitant]
  5. METFORMIN [Concomitant]

REACTIONS (4)
  - Abdominal discomfort [Unknown]
  - Gait disturbance [Unknown]
  - Glioblastoma [Unknown]
  - Agoraphobia [Not Recovered/Not Resolved]
